FAERS Safety Report 24853051 (Version 1)
Quarter: 2025Q1

REPORT INFORMATION
  Report Type: Spontaneous
  Country: US (occurrence: US)
  Receive Date: 20250116
  Receipt Date: 20250116
  Transmission Date: 20250408
  Serious: No
  Sender: ROCHE
  Company Number: US-ROCHE-10000178887

PATIENT
  Age: 36 Year

DRUGS (3)
  1. BEVACIZUMAB [Suspect]
     Active Substance: BEVACIZUMAB
     Indication: Product used for unknown indication
     Route: 065
     Dates: start: 202306
  2. PANITUMUMAB [Concomitant]
     Active Substance: PANITUMUMAB
     Dates: start: 202404
  3. SOTORASIB [Concomitant]
     Active Substance: SOTORASIB
     Dates: start: 202404

REACTIONS (1)
  - Disease progression [Unknown]
